FAERS Safety Report 5422853-0 (Version None)
Quarter: 2007Q3

REPORT INFORMATION
  Report Type: 
  Country: None (occurrence: None)
  Receive Date: 20070730
  Receipt Date: 20070611
  Transmission Date: 20080115
  Serious: Yes (Hospitalization)
  Sender: FDA-Public Use
  Company Number: 200711534BWH

PATIENT
  Age: 43 Year
  Sex: Female
  Weight: 106.5953 kg

DRUGS (3)
  1. AVELOX [Suspect]
     Indication: URINARY TRACT INFECTION
     Dosage: 400 MG, ONCE, ORAL
     Route: 048
     Dates: start: 20050101
  2. TORADOL [Concomitant]
  3. UROGESIC BLUE [WITH NA+ PHOS MONOBAS (DIHYDR) ] [Concomitant]

REACTIONS (1)
  - HYPERSENSITIVITY [None]
